FAERS Safety Report 6953022-0 (Version None)
Quarter: 2010Q3

REPORT INFORMATION
  Report Type: 
  Country: None (occurrence: None)
  Receive Date: 20100829
  Receipt Date: 20100524
  Transmission Date: 20110219
  Serious: No
  Sender: FDA-Public Use
  Company Number: US-ABBOTT-10P-163-0647098-00

PATIENT
  Sex: Female
  Weight: 74.002 kg

DRUGS (15)
  1. NIASPAN [Suspect]
     Indication: BLOOD CHOLESTEROL INCREASED
     Dates: start: 20100501
  2. NIASPAN [Suspect]
     Indication: ISCHAEMIC HEART DISEASE PROPHYLAXIS
  3. COREG [Concomitant]
     Indication: HYPERTENSION
     Dates: start: 20100501
  4. DIOVAN [Concomitant]
     Indication: HYPERTENSION
  5. MAXZIDE [Concomitant]
     Indication: OEDEMA
  6. ISOSORBIDE [Concomitant]
     Indication: CHEST PAIN
  7. PLAVIX [Concomitant]
     Indication: CORONARY ARTERIAL STENT INSERTION
  8. TRIVIL [Concomitant]
     Indication: DEPRESSION
  9. SYNTHROID [Concomitant]
     Indication: HYPOTHYROIDISM
     Dates: start: 19700101
  10. PEPCID [Concomitant]
     Indication: ULCER
  11. DOXICYCLINE [Concomitant]
     Indication: EYE INFECTION
  12. LORBAB [Concomitant]
     Indication: PAIN
  13. KLONOPIN [Concomitant]
     Indication: ANXIETY
  14. NORVASC [Concomitant]
     Indication: HYPERTENSION
  15. ASPIRIN [Concomitant]
     Indication: CARDIAC DISORDER

REACTIONS (1)
  - PRURITUS [None]
